FAERS Safety Report 7228100-1 (Version None)
Quarter: 2011Q1

REPORT INFORMATION
  Report Type: 
  Country: None (occurrence: None)
  Receive Date: 20110114
  Receipt Date: 20110113
  Transmission Date: 20110831
  Serious: Yes (Death)
  Sender: FDA-Public Use
  Company Number: IN-EISAI INC.-E2090-01462-CLI-IN

PATIENT
  Sex: Male
  Weight: 29 kg

DRUGS (3)
  1. ZONISAMIDE [Suspect]
     Indication: EPILEPSY
     Dosage: DOUBLE-BLIND
     Route: 048
     Dates: start: 20100920, end: 20101221
  2. PHENYTOIN [Concomitant]
     Route: 048
     Dates: start: 20100426, end: 20100101
  3. CARBAMAZEPINE [Concomitant]
     Dosage: 200MG ONCE A DAY AND 300MG ONCE A DAY
     Route: 048
     Dates: start: 20100426, end: 20100101

REACTIONS (1)
  - SUDDEN DEATH [None]
